FAERS Safety Report 17455252 (Version 1)
Quarter: 2020Q1

REPORT INFORMATION
  Report Type: Spontaneous
  Country: US (occurrence: US)
  Receive Date: 20200225
  Receipt Date: 20200225
  Transmission Date: 20200409
  Serious: Yes (Other)
  Sender: FDA-Public Use
  Company Number: US-GLAXOSMITHKLINE-US2020AMR029002

PATIENT
  Age: 46 Year
  Sex: Female

DRUGS (2)
  1. BENLYSTA [Suspect]
     Active Substance: BELIMUMAB
     Indication: SYSTEMIC LUPUS ERYTHEMATOSUS
  2. BENLYSTA [Suspect]
     Active Substance: BELIMUMAB
     Indication: MIXED CONNECTIVE TISSUE DISEASE
     Dosage: UNK UNK, WE, 200MG/ML SINGLE-DOSE PREFILLED AUTOINJECTOR WITH 27-GAUGE, HALF-INCH NEEDLE ATTACHED
     Route: 058

REACTIONS (7)
  - Product dose omission [Unknown]
  - Systemic lupus erythematosus [Recovered/Resolved]
  - Injection site pain [Unknown]
  - Exposure via skin contact [Recovered/Resolved]
  - Vision blurred [Recovered/Resolved]
  - Migraine [Recovered/Resolved]
  - Underdose [Unknown]

NARRATIVE: CASE EVENT DATE: 20200208
